FAERS Safety Report 24549003 (Version 1)
Quarter: 2024Q4

REPORT INFORMATION
  Report Type: Spontaneous
  Country: CH (occurrence: CH)
  Receive Date: 20241025
  Receipt Date: 20241025
  Transmission Date: 20250115
  Serious: Yes (Life-Threatening, Hospitalization)
  Sender: GUERBET
  Company Number: CH-GUERBET / GUERBET AG-CH-20240025

PATIENT
  Age: 72 Year
  Sex: Female
  Weight: 65 kg

DRUGS (1)
  1. DOTAREM [Suspect]
     Active Substance: GADOTERATE MEGLUMINE
     Indication: Magnetic resonance imaging joint
     Route: 040
     Dates: start: 20240918, end: 20240918

REACTIONS (8)
  - Anaphylactic reaction [Unknown]
  - Nausea [Unknown]
  - Feeling hot [Unknown]
  - Dyspnoea [Unknown]
  - Cold sweat [Unknown]
  - Vomiting [Unknown]
  - Erythema [Unknown]
  - Physical examination [Unknown]

NARRATIVE: CASE EVENT DATE: 20240918
